FAERS Safety Report 8576179-7 (Version None)
Quarter: 2012Q3

REPORT INFORMATION
  Report Type: 
  Country: None (occurrence: None)
  Receive Date: 20120807
  Receipt Date: 20120801
  Transmission Date: 20120928
  Serious: Yes (Other)
  Sender: FDA-Public Use
  Company Number: US-PFIZER INC-2012187758

PATIENT
  Age: 41 Year
  Sex: Female
  Weight: 105.22 kg

DRUGS (10)
  1. VENTOLIN [Suspect]
     Dosage: UNK
     Dates: end: 20020101
  2. NEURONTIN [Suspect]
     Dosage: 600 MG, 3X/DAY
     Route: 048
  3. MS CONTIN [Suspect]
     Dosage: UNK
     Dates: end: 20020101
  4. CELEBREX [Concomitant]
     Dosage: 200 MG, 2X/DAY
  5. OXYCODONE [Concomitant]
     Dosage: UNK
  6. GABAPENTIN [Suspect]
     Indication: NEURALGIA
     Dosage: UNK, 3X/DAY
     Route: 048
  7. DIAZEPAM [Concomitant]
     Dosage: UNK
  8. NEURONTIN [Suspect]
     Indication: NEURALGIA
     Dosage: 600 MG, 3X/DAY
     Route: 048
  9. PROVENTIL-HFA [Concomitant]
     Dosage: UNK
  10. OXYCONTIN [Suspect]
     Dosage: UNK
     Dates: end: 20020101

REACTIONS (5)
  - NEURALGIA [None]
  - BONE NEOPLASM [None]
  - DYSKINESIA [None]
  - DRUG HYPERSENSITIVITY [None]
  - MALAISE [None]
